FAERS Safety Report 8210438-2 (Version None)
Quarter: 2012Q1

REPORT INFORMATION
  Report Type: 
  Country: None (occurrence: None)
  Receive Date: 20120314
  Receipt Date: 20110707
  Transmission Date: 20120608
  Serious: No
  Sender: FDA-Public Use
  Company Number: US-ASTRAZENECA-2011SE34509

PATIENT
  Age: 76 Year
  Sex: Female
  Weight: 74.4 kg

DRUGS (4)
  1. ZOCOR [Concomitant]
  2. AMIOLODIPINE [Concomitant]
  3. SINGULAIR [Concomitant]
  4. METOPROLOL SUCCINATE EXTENDED RELEASE [Suspect]
     Indication: HYPERTENSION
     Route: 048

REACTIONS (3)
  - FEELING HOT [None]
  - MALAISE [None]
  - VOMITING [None]
